FAERS Safety Report 7819619-0 (Version None)
Quarter: 2011Q4

REPORT INFORMATION
  Report Type: 
  Country: None (occurrence: None)
  Receive Date: 20111018
  Receipt Date: 20111018
  Transmission Date: 20120403
  Serious: Yes (Other)
  Sender: FDA-Public Use
  Company Number: None

PATIENT
  Sex: Female
  Weight: 52.5 kg

DRUGS (1)
  1. IRINOTECAN HCL [Suspect]
     Dosage: 200MG
     Route: 042

REACTIONS (2)
  - DYSARTHRIA [None]
  - SPEECH DISORDER [None]
